FAERS Safety Report 4827599-5 (Version None)
Quarter: 2005Q4

REPORT INFORMATION
  Report Type: 
  Country: None (occurrence: None)
  Receive Date: 20051114
  Receipt Date: 20051023
  Transmission Date: 20060501
  Serious: Yes (Other)
  Sender: FDA-Public Use
  Company Number: PHRM2005FR02845

PATIENT
  Age: 59 Year
  Sex: Female

DRUGS (3)
  1. LAMISIL [Suspect]
     Indication: NAIL TINEA
     Dosage: 250 MG, QD
     Route: 048
     Dates: start: 20050601, end: 20051021
  2. GARDENAL [Concomitant]
  3. GINKOR [Concomitant]

REACTIONS (7)
  - ANAEMIA [None]
  - ECZEMA [None]
  - LEUKAEMIA [None]
  - LEUKOPENIA [None]
  - RASH [None]
  - TOXIC SKIN ERUPTION [None]
  - VITAMIN B12 DECREASED [None]
